FAERS Safety Report 25553817 (Version 1)
Quarter: 2025Q3

REPORT INFORMATION
  Report Type: Other
  Country: EU (occurrence: EU)
  Receive Date: 20250715
  Receipt Date: 20250715
  Transmission Date: 20251021
  Serious: Yes (Hospitalization, Other)
  Sender: MACLEODS
  Company Number: EU-SANDOZ-SDZ2025DE036685

PATIENT

DRUGS (7)
  1. CELECOXIB [Suspect]
     Active Substance: CELECOXIB
     Indication: Prostatic specific antigen
     Route: 065
     Dates: start: 20070509
  2. COSENTYX [Suspect]
     Active Substance: SECUKINUMAB
     Indication: Prostatic specific antigen
     Route: 065
     Dates: start: 20200101
  3. CHOLECALCIFEROL [Concomitant]
     Active Substance: CHOLECALCIFEROL
     Indication: Product used for unknown indication
     Route: 065
  4. METOPROLOL [Concomitant]
     Active Substance: METOPROLOL
     Indication: Product used for unknown indication
     Route: 065
  5. PREDNISOLONE SODIUM PHOSPHATE [Concomitant]
     Active Substance: PREDNISOLONE SODIUM PHOSPHATE
     Indication: Product used for unknown indication
     Route: 065
  6. PREGABALIN [Concomitant]
     Active Substance: PREGABALIN
     Indication: Product used for unknown indication
     Route: 065
  7. CALCIUM CARBONATE [Concomitant]
     Active Substance: CALCIUM CARBONATE
     Indication: Product used for unknown indication
     Route: 065

REACTIONS (2)
  - Ischaemic cerebral infarction [Recovered/Resolved]
  - Transient ischaemic attack [Unknown]

NARRATIVE: CASE EVENT DATE: 20240906
